FAERS Safety Report 8194408 (Version 2)
Quarter: 2012Q4

REPORT INFORMATION
  Report Type: 
  Country: US (occurrence: US)
  Receive Date: 20111023
  Receipt Date: 20121115
  Transmission Date: 20130627
  Serious: Yes (Hospitalization, Other)
  Sender: FDA-Public Use
  Company Number: US-ELI_LILLY_AND_COMPANY-US201110004936

PATIENT
  Age: 48 Year
  Sex: Male

DRUGS (23)
  1. BYETTA [Suspect]
     Indication: PRODUCT USED FOR UNKNOWN INDICATION
     Dosage: 10 ug, bid
     Route: 058
  2. ADVAIR DISKUS [Concomitant]
     Dosage: UNK
     Route: 055
  3. ALLOPURINOL [Concomitant]
     Dosage: 20 mg, qd
  4. COZAAR [Concomitant]
     Dosage: 50 mg, qd
  5. DICYCLOMINE [Concomitant]
     Dosage: 20 mg, qid
  6. DIGOXIN [Concomitant]
     Dosage: 250 ug, qd
  7. DOXAZOSIN [Concomitant]
     Dosage: 2 mg, qd
     Route: 048
  8. FEXOFENADINE [Concomitant]
     Dosage: 180 mg, qd
  9. FOLIC ACID [Concomitant]
     Dosage: 1 mg, qd
  10. HYZAAR [Concomitant]
  11. LANTUS [Concomitant]
     Dosage: 30 u, each evening
     Route: 058
  12. LORTAB [Concomitant]
     Dosage: 10 mg, tid
  13. MELOXICAM [Concomitant]
     Dosage: 15 mg, qd
  14. METHADONE [Concomitant]
     Dosage: 10 mg, qid
  15. METOCLOPRAMIDE [Concomitant]
     Dosage: 10 mg, qid
  16. METOLAZONE [Concomitant]
     Dosage: 2.5 mg, qd
  17. NASOCORT [Concomitant]
     Dosage: UNK
  18. PHENOBARBITAL [Concomitant]
     Dosage: 32.4 mg, tid
  19. PREDNISOLONE [Concomitant]
     Dosage: UNK, tid
     Route: 047
  20. PROAIR [Concomitant]
  21. PROTONIX [Concomitant]
     Dosage: 40 mg, qd
  22. TIMOLOL [Concomitant]
     Dosage: 0.5 mg, bid
  23. WARFARIN [Concomitant]
     Dosage: 5 mg, qd

REACTIONS (2)
  - Renal failure acute [Unknown]
  - Pancreatitis [Unknown]
